FAERS Safety Report 7003087-5 (Version None)
Quarter: 2010Q3

REPORT INFORMATION
  Report Type: 
  Country: None (occurrence: None)
  Receive Date: 20100920
  Receipt Date: 20100205
  Transmission Date: 20110219
  Serious: No
  Sender: FDA-Public Use
  Company Number: US-ASTRAZENECA-2010SE00728

PATIENT
  Age: 40 Year
  Sex: Female
  Weight: 118.4 kg

DRUGS (9)
  1. SEROQUEL XR [Suspect]
     Indication: BIPOLAR DISORDER
     Route: 048
     Dates: start: 20091216, end: 20091219
  2. SEROQUEL XR [Suspect]
     Indication: INSOMNIA
     Route: 048
     Dates: start: 20091216, end: 20091219
  3. SYMBICORT [Concomitant]
     Route: 055
  4. SOMA [Concomitant]
     Indication: BACK PAIN
     Dates: start: 20091201
  5. XANAX [Concomitant]
     Indication: ANXIETY
     Dates: start: 20090101
  6. STERIPRED DS [Concomitant]
  7. ALBUTEROL [Concomitant]
  8. TRAZODONE HCL [Concomitant]
     Indication: INSOMNIA
     Dates: start: 20090101
  9. TEGRETOL [Concomitant]
     Dates: start: 20090101

REACTIONS (4)
  - AGGRESSION [None]
  - AGITATION [None]
  - IRRITABILITY [None]
  - SOMNOLENCE [None]
